FAERS Safety Report 7818773 (Version 1)
Quarter: 2020Q3

REPORT INFORMATION
  Report Type: Report from Study
  Country: BE (occurrence: BE)
  Receive Date: 20110218
  Receipt Date: 20110218
  Transmission Date: 20201105
  Serious: Yes (Other)
  Sender: FDA-Public Use
  Company Number: BE-ROCHE-654307

PATIENT

DRUGS (2)
  1. ZOLEDRONATE [Suspect]
     Active Substance: ZOLEDRONIC ACID
     Dosage: SUCCESSION OF TREATMENT WITH IBANDRONIC ACID
     Route: 042
  2. IBANDRONIC ACID. [Suspect]
     Active Substance: IBANDRONIC ACID
     Dosage: TOTAL BIPHOSPHONATES TAKEN FORA  DURATION OF 23 MONTHS
     Route: 042

REACTIONS (2)
  - Actinomyces test positive [Unknown]
  - Osteonecrosis of jaw [Recovered/Resolved]
